FAERS Safety Report 16099053 (Version 6)
Quarter: 2019Q2

REPORT INFORMATION
  Report Type: Report from Study
  Country: US (occurrence: US)
  Receive Date: 20190321
  Receipt Date: 20190619
  Transmission Date: 20190711
  Serious: Yes (Other)
  Sender: FDA-Public Use
  Company Number: US-GILEAD-2019-0392662

PATIENT
  Age: 44 Year
  Sex: Female
  Weight: 71.66 kg

DRUGS (5)
  1. ORENITRAM [Suspect]
     Active Substance: TREPROSTINIL
     Indication: PULMONARY ARTERIAL HYPERTENSION
     Dosage: 6.5 MG, TID
     Route: 048
     Dates: start: 20190111
  2. AMBRISENTAN [Suspect]
     Active Substance: AMBRISENTAN
     Indication: PULMONARY ARTERIAL HYPERTENSION
     Dosage: 10 MG, QD
     Route: 065
     Dates: start: 20180313
  3. XARELTO [Concomitant]
     Active Substance: RIVAROXABAN
  4. TYVASO [Concomitant]
     Active Substance: TREPROSTINIL
  5. ADCIRCA [Concomitant]
     Active Substance: TADALAFIL

REACTIONS (6)
  - Muscle spasms [Unknown]
  - Nausea [Not Recovered/Not Resolved]
  - Vomiting [Unknown]
  - Headache [Not Recovered/Not Resolved]
  - Autoimmune disorder [Unknown]
  - Pain in extremity [Not Recovered/Not Resolved]
